FAERS Safety Report 18098869 (Version 1)
Quarter: 2020Q3

REPORT INFORMATION
  Report Type: Spontaneous
  Country: KR (occurrence: KR)
  Receive Date: 20200731
  Receipt Date: 20200731
  Transmission Date: 20201103
  Serious: Yes (Other)
  Sender: FDA-Public Use
  Company Number: NVSC2020KR213640

PATIENT

DRUGS (1)
  1. KISQALI [Suspect]
     Active Substance: RIBOCICLIB
     Indication: PRODUCT USED FOR UNKNOWN INDICATION
     Dosage: UNK
     Route: 065
     Dates: start: 202007

REACTIONS (3)
  - Burning sensation [Unknown]
  - Vaginal haemorrhage [Unknown]
  - Dyspnoea [Unknown]

NARRATIVE: CASE EVENT DATE: 202007
